FAERS Safety Report 23931941 (Version 2)
Quarter: 2024Q3

REPORT INFORMATION
  Report Type: Spontaneous
  Country: US (occurrence: US)
  Receive Date: 20240603
  Receipt Date: 20240701
  Transmission Date: 20241016
  Serious: No
  Sender: BAUSCH AND LOMB
  Company Number: US-BAUSCHBL-2024BNL027718

PATIENT
  Age: 74 Year
  Sex: Female
  Weight: 56 kg

DRUGS (3)
  1. MIEBO [Suspect]
     Active Substance: PERFLUOROHEXYLOCTANE
     Indication: Dry eye
     Dosage: 3 TIMES PER DAY AND 2 TIMES PER DAY
     Route: 047
     Dates: start: 202402
  2. CELLUVISC (CARMELLOSE SODIUM) [Concomitant]
     Indication: Product used for unknown indication
     Route: 065
  3. RESTASIS [Concomitant]
     Active Substance: CYCLOSPORINE
     Indication: Product used for unknown indication
     Route: 065

REACTIONS (7)
  - Eye discharge [Unknown]
  - Product use issue [Unknown]
  - Product delivery mechanism issue [Unknown]
  - Product design issue [Unknown]
  - Product packaging quantity issue [Unknown]
  - Inappropriate schedule of product administration [Unknown]
  - Product use complaint [Unknown]

NARRATIVE: CASE EVENT DATE: 20240101
